FAERS Safety Report 20196191 (Version 2)
Quarter: 2022Q1

REPORT INFORMATION
  Report Type: Spontaneous
  Country: CO (occurrence: CO)
  Receive Date: 20211216
  Receipt Date: 20220315
  Transmission Date: 20220423
  Serious: Yes (Hospitalization)
  Sender: FDA-Public Use
  Company Number: CO-PFIZER INC-202101752072

PATIENT
  Sex: Female

DRUGS (2)
  1. LYRICA [Suspect]
     Active Substance: PREGABALIN
     Indication: Depression
     Dosage: UNK
     Route: 048
     Dates: start: 20210520
  2. LYRICA [Suspect]
     Active Substance: PREGABALIN
     Indication: Anxiety disorder

REACTIONS (2)
  - COVID-19 [Unknown]
  - Chronic obstructive pulmonary disease [Recovering/Resolving]

NARRATIVE: CASE EVENT DATE: 20210101
